FAERS Safety Report 4650059-1 (Version None)
Quarter: 2005Q2

REPORT INFORMATION
  Report Type: 
  Country: None (occurrence: None)
  Receive Date: 20050428
  Receipt Date: 20050415
  Transmission Date: 20051028
  Serious: Yes (Hospitalization)
  Sender: FDA-Public Use
  Company Number: HQWYE081918APR05

PATIENT
  Age: 62 Year
  Sex: Female

DRUGS (5)
  1. CORDARONE [Suspect]
     Dosage: 200 MG 1X PER 1 DAY, ORAL
     Route: 048
     Dates: start: 20000519, end: 20000613
  2. DIGOXIN [Suspect]
     Dosage: ^125^ DAILY, ORAL
     Route: 048
  3. WARFARIN SODIUM [Suspect]
     Dosage: ORAL
     Route: 048
  4. ASPIRIN [Concomitant]
  5. GLICLAZIDE (GLICLAZIDE) [Concomitant]

REACTIONS (4)
  - DRUG INTERACTION [None]
  - HEPATIC ENZYME INCREASED [None]
  - INTERNATIONAL NORMALISED RATIO INCREASED [None]
  - RENAL IMPAIRMENT [None]
